FAERS Safety Report 6039021-4 (Version None)
Quarter: 2009Q1

REPORT INFORMATION
  Report Type: 
  Country: None (occurrence: None)
  Receive Date: 20090115
  Receipt Date: 20090105
  Transmission Date: 20090719
  Serious: Yes (Death)
  Sender: FDA-Public Use
  Company Number: US-WYE-H07624009

PATIENT
  Age: 82 Year

DRUGS (2)
  1. TIGECYCLINE [Suspect]
     Indication: ACINETOBACTER INFECTION
     Route: 042
  2. TIGECYCLINE [Suspect]
     Indication: WOUND INFECTION

REACTIONS (3)
  - ACINETOBACTER INFECTION [None]
  - DRUG INEFFECTIVE [None]
  - WOUND INFECTION [None]
